FAERS Safety Report 7372514-6 (Version None)
Quarter: 2011Q1

REPORT INFORMATION
  Report Type: 
  Country: None (occurrence: None)
  Receive Date: 20110324
  Receipt Date: 20110313
  Transmission Date: 20110831
  Serious: Yes (Other)
  Sender: FDA-Public Use
  Company Number: ES-ACTELION-A-CH2011-46287

PATIENT
  Age: 80 Year
  Sex: Female
  Weight: 59 kg

DRUGS (1)
  1. TRACLEER [Suspect]
     Indication: SKIN ULCER
     Dosage: 62.5 MG, BID
     Route: 048
     Dates: start: 20100331, end: 20101017

REACTIONS (2)
  - METASTASIS [None]
  - LUNG ADENOCARCINOMA [None]
